FAERS Safety Report 12193551 (Version 2)
Quarter: 2016Q2

REPORT INFORMATION
  Report Type: Spontaneous
  Country: US (occurrence: US)
  Receive Date: 20160320
  Receipt Date: 20160607
  Transmission Date: 20160815
  Serious: Yes (Hospitalization, Disabling)
  Sender: FDA-Public Use
  Company Number: US-ENDO PHARMACEUTICALS INC.-2016-001923

PATIENT
  Age: 64 Year
  Sex: Male
  Weight: 99.88 kg

DRUGS (2)
  1. TESTIM [Suspect]
     Active Substance: TESTOSTERONE
     Indication: ANDROGEN REPLACEMENT THERAPY
     Route: 062
     Dates: start: 20130401, end: 20140404
  2. ANDRODERM [Suspect]
     Active Substance: TESTOSTERONE
     Indication: ANDROGEN REPLACEMENT THERAPY
     Dosage: ^4 MG^
     Route: 062
     Dates: start: 20130617

REACTIONS (5)
  - Hypertension [Unknown]
  - Pain [Not Recovered/Not Resolved]
  - Lacunar infarction [Not Recovered/Not Resolved]
  - Diabetes mellitus inadequate control [Unknown]
  - Emotional distress [Not Recovered/Not Resolved]

NARRATIVE: CASE EVENT DATE: 20140404
